FAERS Safety Report 6316960-8 (Version None)
Quarter: 2009Q3

REPORT INFORMATION
  Report Type: 
  Country: None (occurrence: None)
  Receive Date: 20090820
  Receipt Date: 20090806
  Transmission Date: 20100115
  Serious: Yes (Hospitalization)
  Sender: FDA-Public Use
  Company Number: ES-MYLANLABS-2009S1014087

PATIENT
  Age: 76 Year
  Sex: Male

DRUGS (3)
  1. TICLOPIDINE HCL [Suspect]
     Indication: CEREBROVASCULAR ACCIDENT
  2. TICLOPIDINE HCL [Suspect]
     Indication: PARKINSON'S DISEASE
  3. SELEGILINE [Suspect]

REACTIONS (1)
  - HEPATOTOXICITY [None]
